FAERS Safety Report 9880743 (Version 3)
Quarter: 2014Q1

REPORT INFORMATION
  Report Type: Spontaneous
  Country: US (occurrence: US)
  Receive Date: 20140207
  Receipt Date: 20140321
  Transmission Date: 20141002
  Serious: No
  Sender: FDA-Public Use
  Company Number: US-PFIZER INC-2014032355

PATIENT
  Age: 72 Year
  Sex: Female
  Weight: 87.1 kg

DRUGS (3)
  1. CELEBREX [Suspect]
     Indication: ARTHRITIS
     Dosage: 200 MG, 1X/DAY
     Route: 048
  2. CELEBREX [Suspect]
     Dosage: 100 MG, 1X/DAY
     Route: 048
     Dates: end: 201311
  3. OMEPRAZOLE [Concomitant]
     Dosage: UNK

REACTIONS (4)
  - Renal disorder [Unknown]
  - Arthralgia [Unknown]
  - Back pain [Unknown]
  - Limb discomfort [Unknown]
